FAERS Safety Report 4953774-5 (Version None)
Quarter: 2006Q1

REPORT INFORMATION
  Report Type: 
  Country: None (occurrence: None)
  Receive Date: 20060324
  Receipt Date: 20060324
  Transmission Date: 20060701
  Serious: No
  Sender: FDA-Public Use
  Company Number: None

PATIENT
  Sex: Male

DRUGS (1)
  1. MALARONE [Suspect]
     Indication: MALARIA PROPHYLAXIS
     Dosage: 100/25  1 PO QD PO
     Route: 048
     Dates: start: 20060228, end: 20060315

REACTIONS (5)
  - ABNORMAL DREAMS [None]
  - ANXIETY [None]
  - CLAUSTROPHOBIA [None]
  - INSOMNIA [None]
  - PANIC DISORDER [None]
